FAERS Safety Report 5444536-3 (Version None)
Quarter: 2007Q3

REPORT INFORMATION
  Report Type: 
  Country: None (occurrence: None)
  Receive Date: 20070904
  Receipt Date: 20070904
  Transmission Date: 20080115
  Serious: Yes (Hospitalization)
  Sender: FDA-Public Use
  Company Number: None

PATIENT
  Age: 72 Year
  Sex: Female

DRUGS (1)
  1. DIGOXIN [Suspect]
     Indication: CARDIAC FAILURE CONGESTIVE
     Dosage: .25MG  Q DAY  PO
     Route: 048

REACTIONS (5)
  - AMNESIA [None]
  - DYSPNOEA [None]
  - HYPERKALAEMIA [None]
  - NODAL ARRHYTHMIA [None]
  - THERAPEUTIC AGENT TOXICITY [None]
